FAERS Safety Report 7403548-0 (Version None)
Quarter: 2011Q2

REPORT INFORMATION
  Report Type: 
  Country: None (occurrence: None)
  Receive Date: 20110408
  Receipt Date: 20110328
  Transmission Date: 20111010
  Serious: No
  Sender: FDA-Public Use
  Company Number: US-MERCK-1103USA01621

PATIENT
  Age: 46 Year
  Sex: Female

DRUGS (3)
  1. VYTORIN [Suspect]
     Indication: BLOOD CHOLESTEROL INCREASED
     Route: 048
     Dates: start: 20051101, end: 20061101
  2. LORTAB [Concomitant]
     Indication: MIGRAINE
     Route: 065
  3. ZOCOR [Suspect]
     Route: 048

REACTIONS (5)
  - ANTINUCLEAR ANTIBODY POSITIVE [None]
  - DERMATITIS [None]
  - FEELING HOT [None]
  - HYPOAESTHESIA ORAL [None]
  - STRESS [None]
